FAERS Safety Report 26158301 (Version 1)
Quarter: 2025Q4

REPORT INFORMATION
  Report Type: Spontaneous
  Country: US (occurrence: None)
  Receive Date: 20251215
  Receipt Date: 20251215
  Transmission Date: 20260118
  Serious: Yes (Hospitalization)
  Sender: FDA-CTU
  Company Number: None

PATIENT
  Age: 50 Year
  Sex: Male

DRUGS (9)
  1. TACROLIMUS [Suspect]
     Active Substance: TACROLIMUS
     Indication: Liver transplant
     Dosage: FREQUENCY : TWICE A DAY;
     Route: 048
  2. MYCOPHENOLIC ACID [Suspect]
     Active Substance: MYCOPHENOLIC ACID
     Indication: Liver transplant
     Dosage: FREQUENCY : TWICE A DAY;
     Route: 048
  3. Valganciclovir 450 mg tablets [Concomitant]
  4. FAMOTIDINE [Concomitant]
     Active Substance: FAMOTIDINE
  5. Ursodiol 500 mg tablets [Concomitant]
  6. Sulfamethoxazole-trimethoprim 400-80 mg tablets [Concomitant]
  7. Aspirin 81 mg chewable tablets [Concomitant]
  8. Ondansetron 4 mg tablets [Concomitant]
  9. PREDNISONE [Concomitant]
     Active Substance: PREDNISONE

REACTIONS (3)
  - Haematological infection [None]
  - Viral infection [None]
  - Liver disorder [None]
